FAERS Safety Report 8648461 (Version 2)
Quarter: 2012Q4

REPORT INFORMATION
  Report Type: 
  Country: BE (occurrence: BE)
  Receive Date: 20120703
  Receipt Date: 20121119
  Transmission Date: 20130627
  Serious: Yes (Life-Threatening, Hospitalization, Other)
  Sender: FDA-Public Use
  Company Number: BE-ELI_LILLY_AND_COMPANY-BE201206000294

PATIENT
  Age: 54 Year
  Sex: Male
  Weight: 46 kg

DRUGS (6)
  1. ALIMTA [Suspect]
     Indication: LUNG ADENOCARCINOMA
     Dosage: 500 mg, every 3 weeks
     Dates: start: 20111108
  2. ALIMTA [Suspect]
     Dosage: 500 mg, UNK
  3. ALIMTA [Suspect]
     Dosage: 761 mg, unknown
     Route: 042
     Dates: start: 20120516
  4. CISPLATIN [Concomitant]
     Indication: LUNG NEOPLASM MALIGNANT
     Dosage: UNK
     Dates: start: 20111108
  5. VITAMIN B12 [Concomitant]
     Indication: PREMEDICATION
  6. FOLIC ACID [Concomitant]
     Indication: PREMEDICATION

REACTIONS (3)
  - Pneumonia [Recovered/Resolved]
  - Febrile neutropenia [Recovered/Resolved]
  - Chronic obstructive pulmonary disease [Recovering/Resolving]
